FAERS Safety Report 5371568-6 (Version None)
Quarter: 2007Q2

REPORT INFORMATION
  Report Type: 
  Country: None (occurrence: None)
  Receive Date: 20070625
  Receipt Date: 20070611
  Transmission Date: 20071010
  Serious: Yes (Hospitalization)
  Sender: FDA-Public Use
  Company Number: 2007BI009060

PATIENT
  Age: 59 Year
  Sex: Female

DRUGS (7)
  1. AVONEX [Suspect]
     Indication: MULTIPLE SCLEROSIS
     Dosage: 30 UG;QW;IM
     Route: 030
     Dates: start: 20030613
  2. ULTRAM [Concomitant]
  3. CALCIUM CHLORIDE [Concomitant]
  4. ESTROGENS SOL/INJ [Concomitant]
  5. B50 [Concomitant]
  6. ZYRTEC [Concomitant]
  7. TOPAMAX [Concomitant]

REACTIONS (1)
  - INTERVERTEBRAL DISC PROTRUSION [None]
